FAERS Safety Report 23359511 (Version 1)
Quarter: 2024Q1

REPORT INFORMATION
  Report Type: Spontaneous
  Country: HR (occurrence: HR)
  Receive Date: 20240103
  Receipt Date: 20240103
  Transmission Date: 20240410
  Serious: Yes (Hospitalization, Other)
  Sender: FDA-Public Use
  Company Number: HR-AMGEN-HRVSP2023231371

PATIENT
  Age: 62 Year

DRUGS (2)
  1. BEVACIZUMAB [Suspect]
     Active Substance: BEVACIZUMAB
     Indication: Hepatocellular carcinoma
     Dosage: 100MG/4ML, CYCLICAL (12 CYCLES RECEIVED)
     Route: 042
     Dates: start: 202211
  2. ATEZOLIZUMAB [Suspect]
     Active Substance: ATEZOLIZUMAB
     Indication: Hepatocellular carcinoma
     Dosage: CYCLICAL (12 CYCLES RECEIVED)
     Route: 065
     Dates: start: 202211

REACTIONS (6)
  - Autoimmune hepatitis [Recovering/Resolving]
  - Compartment syndrome [Unknown]
  - Cellulitis [Unknown]
  - Post procedural complication [Unknown]
  - Drug effective for unapproved indication [Unknown]
  - Off label use [Unknown]

NARRATIVE: CASE EVENT DATE: 20230701
